FAERS Safety Report 24774660 (Version 1)
Quarter: 2024Q4

REPORT INFORMATION
  Report Type: Other
  Country: CA (occurrence: CA)
  Receive Date: 20241226
  Receipt Date: 20241226
  Transmission Date: 20250114
  Serious: Yes (Hospitalization, Other)
  Sender: APOTEX
  Company Number: CA-APOTEX-2024AP019880

PATIENT
  Age: 16 Year
  Sex: Female
  Weight: 61 kg

DRUGS (2)
  1. IMATINIB [Suspect]
     Active Substance: IMATINIB
     Indication: B-cell type acute leukaemia
     Dosage: 150 MILLIGRAM, QD (TAKE 1 AND 1/2 TABLETS (150MG) ONCE DAILY)
     Route: 048
     Dates: start: 20240419
  2. IMATINIB [Suspect]
     Active Substance: IMATINIB
     Indication: B-cell type acute leukaemia
     Dosage: 400 MILLIGRAM, QD (400MG TABLET (TOTAL DOSE = 550MG))
     Route: 048
     Dates: start: 20240419

REACTIONS (7)
  - Enterovirus infection [Unknown]
  - Rhinovirus infection [Unknown]
  - Inappropriate schedule of product administration [Unknown]
  - Product dose omission issue [Unknown]
  - Pneumonia [Unknown]
  - Weight decreased [Unknown]
  - Febrile neutropenia [Unknown]

NARRATIVE: CASE EVENT DATE: 20241201
